FAERS Safety Report 10224917 (Version 2)
Quarter: 2014Q3

REPORT INFORMATION
  Report Type: Report from Study
  Country: US (occurrence: US)
  Receive Date: 20140609
  Receipt Date: 20140702
  Transmission Date: 20150326
  Serious: Yes (Hospitalization)
  Sender: FDA-Public Use
  Company Number: US-ACTELION-A-NJ2014-100009

PATIENT
  Age: 49 Year
  Sex: Female

DRUGS (3)
  1. VENTAVIS [Suspect]
     Active Substance: ILOPROST
     Dosage: 5 MCG, 4XDAILY
     Route: 055
  2. LETAIRIS [Concomitant]
     Active Substance: AMBRISENTAN
  3. VENTAVIS [Suspect]
     Active Substance: ILOPROST
     Indication: COR PULMONALE CHRONIC
     Dosage: 5 MCG, 6-9XDAY
     Route: 055
     Dates: start: 20130619

REACTIONS (3)
  - Headache [Unknown]
  - Diabetes mellitus [Unknown]
  - Malaise [Unknown]

NARRATIVE: CASE EVENT DATE: 201405
